FAERS Safety Report 21274412 (Version 5)
Quarter: 2023Q1

REPORT INFORMATION
  Report Type: Spontaneous
  Country: US (occurrence: US)
  Receive Date: 20220831
  Receipt Date: 20230130
  Transmission Date: 20230418
  Serious: Yes (Life-Threatening, Disabling)
  Sender: FDA-Public Use
  Company Number: US-AMERICAN REGENT INC-2022000669

PATIENT
  Age: 36 Year
  Sex: Female
  Weight: 71.202 kg

DRUGS (27)
  1. FERRIC CARBOXYMALTOSE [Suspect]
     Active Substance: FERRIC CARBOXYMALTOSE
     Indication: Iron deficiency anaemia
     Dosage: 750 MILLIGRAM, SINGLE
     Route: 042
     Dates: start: 201510, end: 201510
  2. FERRIC CARBOXYMALTOSE [Suspect]
     Active Substance: FERRIC CARBOXYMALTOSE
     Dosage: 750 MILLIGRAM, SINGLE
     Route: 042
     Dates: start: 201510, end: 201510
  3. FERRIC CARBOXYMALTOSE [Suspect]
     Active Substance: FERRIC CARBOXYMALTOSE
     Dosage: UNK, SINGLE
     Route: 042
     Dates: start: 201708, end: 201708
  4. FERRIC CARBOXYMALTOSE [Suspect]
     Active Substance: FERRIC CARBOXYMALTOSE
     Dosage: 750 MILLIGRAM IN 500 ML OF 0.9% NS, SINGLE
     Route: 042
     Dates: start: 20200304, end: 20200304
  5. WARFARIN [Concomitant]
     Active Substance: WARFARIN
     Indication: Pulmonary embolism
     Dosage: 7.5 MILLIGRAM
     Route: 048
     Dates: start: 2011, end: 20200524
  6. AMINO ACIDS\CARBOHYDRATES\MINERALS\VITAMINS [Concomitant]
     Active Substance: AMINO ACIDS\CARBOHYDRATES\MINERALS\VITAMINS
     Indication: Impaired gastric emptying
     Dosage: 6 DAYS A WEEK
     Route: 051
     Dates: start: 201201
  7. AMINO ACIDS\CARBOHYDRATES\MINERALS\VITAMINS [Concomitant]
     Active Substance: AMINO ACIDS\CARBOHYDRATES\MINERALS\VITAMINS
     Indication: Intestinal pseudo-obstruction
  8. AMINO ACIDS\CARBOHYDRATES\MINERALS\VITAMINS [Concomitant]
     Active Substance: AMINO ACIDS\CARBOHYDRATES\MINERALS\VITAMINS
     Indication: Gastrointestinal hypermotility
  9. AMINO ACIDS\CARBOHYDRATES\MINERALS\VITAMINS [Concomitant]
     Active Substance: AMINO ACIDS\CARBOHYDRATES\MINERALS\VITAMINS
     Indication: Malnutrition
  10. SELENIUM [Concomitant]
     Active Substance: SELENIUM
     Indication: Nutritional supplementation
     Dosage: 95 MICROGRAM (1 DROP), QD
     Route: 060
  11. ZELNORM [Concomitant]
     Active Substance: TEGASEROD MALEATE
     Indication: Gastrointestinal motility disorder
     Dosage: 6 MILLIGRAM, BID BEFORE MEALS
     Route: 048
     Dates: start: 20191210
  12. LOVENOX [Concomitant]
     Active Substance: ENOXAPARIN SODIUM
     Indication: Pulmonary embolism
     Dosage: 80 MG/0.8 ML SYRINGE
     Dates: start: 20191101, end: 20200524
  13. FLAGYL [Concomitant]
     Active Substance: METRONIDAZOLE\METRONIDAZOLE HYDROCHLORIDE
     Indication: Gastrointestinal bacterial overgrowth
     Dosage: 500 MILLIGRAM EVERY 8 HRS X 10 DAYS; EVERY 3RD MONTH TAKE 10 DAY REGIMEN
     Route: 048
     Dates: start: 20191008, end: 20211110
  14. XIFAXAN [Concomitant]
     Active Substance: RIFAXIMIN
     Indication: Gastrointestinal bacterial overgrowth
     Dosage: 550 MILLIGRAM EVEY 12 HRS X 10 DAYS; EVERY 3RD MONTH TAKE 10 DAY REGIMEN PRN
     Route: 048
     Dates: start: 20191009
  15. XIFAXAN [Concomitant]
     Active Substance: RIFAXIMIN
     Indication: Irritable bowel syndrome
  16. TYLENOL [Concomitant]
     Active Substance: ACETAMINOPHEN
     Indication: Pain
     Dosage: 1000 MILLIGRAM (TWO 500 MG TABS), Q8H PRN
     Route: 048
     Dates: start: 20190817, end: 20200524
  17. ZOFRAN [Concomitant]
     Active Substance: ONDANSETRON HYDROCHLORIDE
     Indication: Nausea
     Dosage: 4 MILLIGRAM, Q8H PRN FOR UP TO 7 DAYS
     Route: 048
     Dates: start: 20190817
  18. ZOFRAN [Concomitant]
     Active Substance: ONDANSETRON HYDROCHLORIDE
     Indication: Vomiting
  19. VITAMIN D3 [Concomitant]
     Active Substance: CHOLECALCIFEROL
     Indication: Product used for unknown indication
     Dosage: 1000 UNITS BID
     Route: 048
     Dates: start: 20190207
  20. CYANOCOBALAMIN [Concomitant]
     Active Substance: CYANOCOBALAMIN
     Indication: Product used for unknown indication
     Dosage: 1000 MICROGRAM MONTHLY
     Route: 030
  21. POTASSIUM CHLORIDE [Concomitant]
     Active Substance: POTASSIUM CHLORIDE
     Indication: Product used for unknown indication
     Dosage: 40 MILLIEQUIVALENT, QD
     Route: 048
  22. VITAMINS [Concomitant]
     Active Substance: VITAMINS
     Indication: Product used for unknown indication
     Dosage: 10 MILLILITER, QD
     Route: 042
  23. ORAL REHYDRATION SALTS [GLUCOSE;POTASSIUM CHLORIDE;SODIUM CHLORIDE;SOD [Concomitant]
     Indication: Product used for unknown indication
     Dosage: 1 PACKET, PRN
     Route: 048
  24. HEPARIN [Concomitant]
     Active Substance: HEPARIN SODIUM
     Indication: Product used for unknown indication
     Dosage: 5 MILLILITER, AS DIRECTED
     Route: 042
  25. ACTIVASE [Concomitant]
     Active Substance: ALTEPLASE
     Indication: Product used for unknown indication
     Dosage: 2 MILLIGRAM, PRN
     Route: 042
  26. ONDANSETRON HCL [Concomitant]
     Active Substance: ONDANSETRON HYDROCHLORIDE
     Indication: Nausea
     Dosage: 2 MILLIGRAM, Q6H
     Route: 042
  27. ONDANSETRON HCL [Concomitant]
     Active Substance: ONDANSETRON HYDROCHLORIDE
     Indication: Vomiting

REACTIONS (15)
  - Pain [Recovering/Resolving]
  - Tinnitus [Recovering/Resolving]
  - Myalgia [Not Recovered/Not Resolved]
  - Hypophosphataemia [Not Recovered/Not Resolved]
  - Dizziness [Recovering/Resolving]
  - Headache [Recovering/Resolving]
  - Arthralgia [Not Recovered/Not Resolved]
  - Malaise [Recovering/Resolving]
  - Body temperature decreased [Recovered/Resolved]
  - Feeling abnormal [Recovering/Resolving]
  - Body temperature increased [Recovered/Resolved]
  - Anhedonia [Not Recovered/Not Resolved]
  - Emotional distress [Not Recovered/Not Resolved]
  - Anxiety [Not Recovered/Not Resolved]
  - Product quality issue [Unknown]

NARRATIVE: CASE EVENT DATE: 20151103
